FAERS Safety Report 4927087-1 (Version None)
Quarter: 2006Q1

REPORT INFORMATION
  Report Type: 
  Country: None (occurrence: None)
  Receive Date: 20060228
  Receipt Date: 20051020
  Transmission Date: 20060701
  Serious: No
  Sender: FDA-Public Use
  Company Number: US-GLAXOSMITHKLINE-A0578990A

PATIENT
  Age: 77 Year
  Sex: Female
  Weight: 75 kg

DRUGS (14)
  1. LAMICTAL [Suspect]
     Indication: EPILEPSY
     Dosage: 25MG TWICE PER DAY
     Route: 048
     Dates: start: 20051022
  2. NORVASC [Concomitant]
     Indication: HYPERTENSION
     Dosage: 5MG PER DAY
     Route: 048
     Dates: start: 20051014
  3. COGENTIN [Concomitant]
     Indication: PARKINSONISM
     Dosage: 2MG TWICE PER DAY
     Route: 048
  4. TYLENOL (CAPLET) [Concomitant]
     Dosage: 650MG TWICE PER DAY
     Route: 048
  5. ZANTAC [Concomitant]
     Dosage: 150MG TWICE PER DAY
     Route: 048
  6. ASPIRIN [Concomitant]
     Indication: INFLAMMATION
     Dosage: 325MG PER DAY
     Route: 048
  7. MAXIVISION [Concomitant]
     Indication: DRUG USE FOR UNKNOWN INDICATION
     Route: 048
  8. ARICEPT [Concomitant]
     Dosage: 10MG PER DAY
     Route: 048
  9. ZYPREXA [Concomitant]
     Indication: DRUG USE FOR UNKNOWN INDICATION
     Dosage: 20MG PER DAY
     Route: 050
  10. ATIVAN [Concomitant]
     Indication: AGITATION
     Dosage: .5MG AS REQUIRED
     Route: 048
  11. MIACALCIN [Concomitant]
     Dosage: 1SPR PER DAY
     Route: 045
  12. PRED FORTE [Concomitant]
     Route: 047
     Dates: start: 20051101
  13. ZYMAR [Concomitant]
     Dates: start: 20051030
  14. CANDESARTAN [Concomitant]
     Route: 048
     Dates: end: 20051013

REACTIONS (1)
  - RASH [None]
